FAERS Safety Report 4961614-3 (Version None)
Quarter: 2006Q1

REPORT INFORMATION
  Report Type: 
  Country: None (occurrence: None)
  Receive Date: 20060329
  Receipt Date: 20060314
  Transmission Date: 20060701
  Serious: Yes (Other)
  Sender: FDA-Public Use
  Company Number: 2006P1000186

PATIENT
  Age: 34 Year
  Sex: Female

DRUGS (1)
  1. NICARDIPINE HYDROCHLORIDE [Suspect]
     Indication: PRE-ECLAMPSIA
     Dosage: UNKNOWN; IV
     Route: 042
     Dates: start: 20040107, end: 20040114

REACTIONS (3)
  - CAESAREAN SECTION [None]
  - POSTPARTUM HAEMORRHAGE [None]
  - PREMATURE BABY [None]
